FAERS Safety Report 8710050 (Version 2)
Quarter: 2015Q1

REPORT INFORMATION
  Report Type: Report from Study
  Country: US (occurrence: US)
  Receive Date: 20120806
  Receipt Date: 20150205
  Transmission Date: 20150721
  Serious: Yes (Other)
  Sender: FDA-Public Use
  Company Number: US-ROCHE-1097663

PATIENT
  Sex: Female
  Weight: 93.07 kg

DRUGS (13)
  1. XOLAIR [Suspect]
     Active Substance: OMALIZUMAB
     Route: 058
  2. CLARINEX [Concomitant]
     Active Substance: DESLORATADINE
  3. ALBUTEROL. [Concomitant]
     Active Substance: ALBUTEROL
     Dosage: 1 PUFF 4 TIMES A DAY
     Route: 065
  4. DUONEB [Concomitant]
     Active Substance: ALBUTEROL SULFATE\IPRATROPIUM BROMIDE
     Route: 065
  5. UNIPHYLLIN [Concomitant]
     Active Substance: THEOPHYLLINE ANHYDROUS
     Route: 048
  6. SINGULAIR [Concomitant]
     Active Substance: MONTELUKAST SODIUM
     Route: 048
  7. CORTISONE [Concomitant]
     Active Substance: CORTISONE\HYDROCORTISONE
  8. XOLAIR [Suspect]
     Active Substance: OMALIZUMAB
     Indication: ASTHMA
     Route: 058
     Dates: start: 200610, end: 20070308
  9. PREDNISONE. [Concomitant]
     Active Substance: PREDNISONE
     Route: 048
  10. THEOPHYLLIN [Concomitant]
     Active Substance: THEOPHYLLINE ANHYDROUS
  11. TOPROL XL [Concomitant]
     Active Substance: METOPROLOL SUCCINATE
  12. ADVAIR HFA [Concomitant]
     Active Substance: FLUTICASONE PROPIONATE\SALMETEROL XINAFOATE
     Dosage: 500/50 1 PUFF DAILY
     Route: 065
  13. ATROVENT [Concomitant]
     Active Substance: IPRATROPIUM BROMIDE

REACTIONS (16)
  - Dyspnoea exertional [Unknown]
  - Oedema peripheral [Unknown]
  - Poor quality sleep [Unknown]
  - Breath sounds abnormal [Unknown]
  - Prolonged expiration [Unknown]
  - Obesity [Unknown]
  - Headache [Unknown]
  - Wheezing [Unknown]
  - Fatigue [Unknown]
  - Chest pain [Unknown]
  - Dyspnoea [Unknown]
  - Dyspnoea at rest [Unknown]
  - Cough [Unknown]
  - Chest discomfort [Unknown]
  - Sleep disorder [Unknown]
  - Discomfort [Unknown]
